FAERS Safety Report 5409540-X (Version None)
Quarter: 2007Q3

REPORT INFORMATION
  Report Type: 
  Country: None (occurrence: None)
  Receive Date: 20070807
  Receipt Date: 20070718
  Transmission Date: 20080115
  Serious: Yes (Hospitalization)
  Sender: FDA-Public Use
  Company Number: 2007BI016352

PATIENT
  Age: 60 Year
  Sex: Female

DRUGS (21)
  1. NATALIZUMAB [Suspect]
     Dosage: IV
     Route: 042
     Dates: start: 20070101
  2. NITROQUICK [Concomitant]
  3. ELMIRON [Concomitant]
  4. AMBIEN CR [Concomitant]
  5. PROCTOSOL [Concomitant]
  6. GLYCERIN SUPPOSITORY [Concomitant]
  7. OXYBUTYNIN CHLORIDE [Concomitant]
  8. METHADONE HCL [Concomitant]
  9. METOPROLOL SUCCINATE [Concomitant]
  10. FOSAMAX [Concomitant]
  11. AMITIZA [Concomitant]
  12. LISINOPRIL [Concomitant]
  13. SIMVASTATIN [Concomitant]
  14. NITROFURANTOIN [Concomitant]
  15. CRYSTALOSE [Concomitant]
  16. ASPIRIN [Concomitant]
  17. PROTONIX [Concomitant]
  18. AMITRIPTYLINE HCL [Concomitant]
  19. KEPPRA [Concomitant]
  20. BACLOFEN [Concomitant]
  21. MORPHINE [Concomitant]

REACTIONS (3)
  - DISSEMINATED INTRAVASCULAR COAGULATION [None]
  - POST PROCEDURAL COMPLICATION [None]
  - URETHRAL POLYP [None]
